FAERS Safety Report 6181202-3 (Version None)
Quarter: 2009Q2

REPORT INFORMATION
  Report Type: 
  Country: None (occurrence: None)
  Receive Date: 20090506
  Receipt Date: 20090427
  Transmission Date: 20091009
  Serious: Yes (Death)
  Sender: FDA-Public Use
  Company Number: US-ELI_LILLY_AND_COMPANY-US200904005011

PATIENT
  Age: 7 Year
  Sex: Male
  Weight: 30.385 kg

DRUGS (4)
  1. SYMBYAX [Suspect]
     Indication: PARAPHILIA
     Dosage: 1 D/F, UNK
  2. ZYPREXA [Suspect]
     Indication: AGITATION
     Dates: end: 20090101
  3. VYVANSE [Concomitant]
  4. LEXAPRO [Concomitant]
     Indication: DEPRESSION
     Dates: end: 20090101

REACTIONS (7)
  - AGITATION [None]
  - COMPLETED SUICIDE [None]
  - DEPRESSION [None]
  - IMPULSIVE BEHAVIOUR [None]
  - PARAPHILIA [None]
  - SELF INJURIOUS BEHAVIOUR [None]
  - SUICIDAL IDEATION [None]
